FAERS Safety Report 19944033 (Version 1)
Quarter: 2021Q4

REPORT INFORMATION
  Report Type: Spontaneous
  Country: US (occurrence: US)
  Receive Date: 20211011
  Receipt Date: 20211011
  Transmission Date: 20220303
  Serious: No
  Sender: FDA-Public Use
  Company Number: US-BAUSCH-BL-2021-033359

PATIENT
  Sex: Female

DRUGS (3)
  1. TOBRAMYCIN AND DEXAMETHASONE [Suspect]
     Active Substance: DEXAMETHASONE\TOBRAMYCIN
     Indication: Lacrimation increased
     Route: 047
     Dates: start: 202109, end: 202109
  2. TOBRAMYCIN AND DEXAMETHASONE [Suspect]
     Active Substance: DEXAMETHASONE\TOBRAMYCIN
     Indication: Blepharitis
  3. TOBRAMYCIN AND DEXAMETHASONE [Suspect]
     Active Substance: DEXAMETHASONE\TOBRAMYCIN
     Indication: Eyelid irritation

REACTIONS (4)
  - Instillation site pain [Not Recovered/Not Resolved]
  - Photosensitivity reaction [Not Recovered/Not Resolved]
  - Periorbital pain [Not Recovered/Not Resolved]
  - Instillation site erythema [Not Recovered/Not Resolved]

NARRATIVE: CASE EVENT DATE: 20210901
